FAERS Safety Report 11519923 (Version 1)
Quarter: 2015Q3

REPORT INFORMATION
  Report Type: Report from Study
  Country: JP (occurrence: JP)
  Receive Date: 20150918
  Receipt Date: 20150918
  Transmission Date: 20151125
  Serious: Yes (Death, Other)
  Sender: FDA-Public Use
  Company Number: JP-SHIRE-JP201509119AA

PATIENT
  Age: 69 Year
  Sex: Female
  Weight: 46.2 kg

DRUGS (13)
  1. AMLODIPIN                          /00972401/ [Concomitant]
     Active Substance: AMLODIPINE BESYLATE
     Indication: PRODUCT USED FOR UNKNOWN INDICATION
     Dosage: UNK, UNKNOWN
     Route: 048
     Dates: end: 20150525
  2. 422 (ANAGRELIDE) [Suspect]
     Active Substance: ANAGRELIDE
     Dosage: 1.5 MG/DAY, UNKNOWN
     Route: 048
     Dates: start: 20150120, end: 20150202
  3. HYDREA [Concomitant]
     Active Substance: HYDROXYUREA
     Dosage: 2000MG/DAY, 2X/WEEK
     Route: 048
     Dates: start: 1999
  4. HYDREA [Concomitant]
     Active Substance: HYDROXYUREA
     Dosage: 1500MG/DAY, UNKNOWN
     Route: 048
     Dates: start: 20140520, end: 20141103
  5. BUFFERIN [Concomitant]
     Active Substance: ASPIRIN
     Indication: ESSENTIAL THROMBOCYTHAEMIA
     Dosage: UNK, UNKNOWN
     Route: 048
     Dates: end: 20150317
  6. PERDIPINE [Concomitant]
     Active Substance: NICARDIPINE HYDROCHLORIDE
     Indication: PRODUCT USED FOR UNKNOWN INDICATION
     Dosage: UNK, UNKNOWN
     Route: 042
     Dates: start: 20150405, end: 20150525
  7. 422 (ANAGRELIDE) [Suspect]
     Active Substance: ANAGRELIDE
     Dosage: 1.0 MG/DAY, UNKNOWN
     Route: 048
     Dates: start: 20141224, end: 20150119
  8. HYDREA [Concomitant]
     Active Substance: HYDROXYUREA
     Dosage: 2500MG/DAY, DAILY
     Route: 048
     Dates: start: 20130521, end: 20140519
  9. BAYASPIRIN [Concomitant]
     Active Substance: ASPIRIN
     Indication: ESSENTIAL THROMBOCYTHAEMIA
     Dosage: UNK, UNKNOWN
     Route: 048
     Dates: start: 20150318, end: 20150327
  10. 422 (ANAGRELIDE) [Suspect]
     Active Substance: ANAGRELIDE
     Dosage: 2.0 MG/DAY, UNKNOWN
     Route: 048
     Dates: start: 20150203, end: 20150302
  11. 422 (ANAGRELIDE) [Suspect]
     Active Substance: ANAGRELIDE
     Indication: ESSENTIAL THROMBOCYTHAEMIA
     Dosage: 2.5 MG, UNKNOWN
     Route: 048
     Dates: start: 20150303, end: 20150323
  12. HYDREA [Concomitant]
     Active Substance: HYDROXYUREA
     Indication: ESSENTIAL THROMBOCYTHAEMIA
     Dosage: 1500MG/DAY, UNKNOWN
     Dates: start: 20141224, end: 20150318
  13. HYDREA [Concomitant]
     Active Substance: HYDROXYUREA
     Dosage: 2000MG/1500MG ALTERNATE ADMINISTRATION, UNKNOWN
     Route: 048
     Dates: start: 20141104, end: 20141223

REACTIONS (8)
  - Raynaud^s phenomenon [Fatal]
  - Hypertension [Recovering/Resolving]
  - Platelet count decreased [Recovered/Resolved]
  - Cholecystitis [Recovering/Resolving]
  - Cholelithiasis [Recovering/Resolving]
  - Posterior reversible encephalopathy syndrome [Not Recovered/Not Resolved]
  - Extremity necrosis [Fatal]
  - Ventricular extrasystoles [Recovering/Resolving]

NARRATIVE: CASE EVENT DATE: 20150106
